FAERS Safety Report 6102260-8 (Version None)
Quarter: 2009Q1

REPORT INFORMATION
  Report Type: 
  Country: None (occurrence: None)
  Receive Date: 20090227
  Receipt Date: 20080205
  Transmission Date: 20090719
  Serious: Yes (Other)
  Sender: FDA-Public Use
  Company Number: 545503

PATIENT
  Age: 21 Year
  Sex: Male
  Weight: 76.2 kg

DRUGS (2)
  1. ACCUTANE [Suspect]
     Indication: ACNE
     Dosage: 30 MG 1 PER DAY
  2. ROGAINE [Suspect]
     Indication: ALOPECIA
     Dosage: 2 PER DAY TOPICAL
     Route: 061
     Dates: start: 20071217, end: 20071227

REACTIONS (1)
  - PETIT MAL EPILEPSY [None]
